FAERS Safety Report 9565799 (Version 1)
Quarter: 2013Q3

REPORT INFORMATION
  Report Type: Report from Study
  Country: US (occurrence: US)
  Receive Date: 20130930
  Receipt Date: 20130930
  Transmission Date: 20140515
  Serious: Yes (Hospitalization)
  Sender: FDA-Public Use
  Company Number: US-GLAXOSMITHKLINE-B0925856A

PATIENT
  Sex: Female

DRUGS (2)
  1. BUPROPION [Suspect]
     Dosage: 150MG PER DAY
     Route: 065
  2. METHAMPHETAMINE HYDROCHLORIDE [Concomitant]

REACTIONS (2)
  - Suicidal ideation [Unknown]
  - Dependence [Unknown]
